FAERS Safety Report 16688982 (Version 1)
Quarter: 2019Q3

REPORT INFORMATION
  Report Type: Spontaneous
  Country: US (occurrence: US)
  Receive Date: 20190809
  Receipt Date: 20190809
  Transmission Date: 20191004
  Serious: Yes (Other)
  Sender: FDA-Public Use
  Company Number: US-ELI_LILLY_AND_COMPANY-US201907016739

PATIENT
  Sex: Male

DRUGS (3)
  1. IRON [Concomitant]
     Active Substance: IRON
     Indication: HAEMORRHAGE
  2. HUMALOG [Suspect]
     Active Substance: INSULIN LISPRO
     Indication: TYPE 1 DIABETES MELLITUS
     Dosage: UNK, UNKNOWN
     Route: 058
     Dates: start: 1956
  3. HUMALOG [Suspect]
     Active Substance: INSULIN LISPRO
     Dosage: UNK, UNKNOWN
     Route: 058

REACTIONS (11)
  - Blood glucose increased [Unknown]
  - Scar [Unknown]
  - Contusion [Unknown]
  - Dizziness [Unknown]
  - Acidosis [Unknown]
  - Confusional state [Unknown]
  - Blood glucose decreased [Recovered/Resolved]
  - Open globe injury [Not Recovered/Not Resolved]
  - Cerebral disorder [Unknown]
  - Visual impairment [Not Recovered/Not Resolved]
  - Haemorrhage [Not Recovered/Not Resolved]
